FAERS Safety Report 5839402-5 (Version None)
Quarter: 2008Q3

REPORT INFORMATION
  Report Type: 
  Country: None (occurrence: None)
  Receive Date: 20080806
  Receipt Date: 20080728
  Transmission Date: 20090109
  Serious: Yes (Hospitalization)
  Sender: FDA-Public Use
  Company Number: GXKR2008GB07056

PATIENT
  Sex: Male

DRUGS (4)
  1. AMIODARONE                       (AMIODARONE) UNKNOWN [Suspect]
     Indication: ATRIAL FIBRILLATION
     Dosage: 100 MG, QD, ORAL
     Route: 048
     Dates: start: 20060101, end: 20080101
  2. ACETYLSALICYLIC ACID SRT [Concomitant]
  3. BUMETANIDE [Concomitant]
  4. LACTULOSE [Concomitant]

REACTIONS (3)
  - ANAEMIA MACROCYTIC [None]
  - HYPOTHYROIDISM [None]
  - MELAENA [None]
